FAERS Safety Report 8965275 (Version 2)
Quarter: 2012Q4

REPORT INFORMATION
  Report Type: 
  Country: PL (occurrence: PL)
  Receive Date: 20121213
  Receipt Date: 20121226
  Transmission Date: 20130627
  Serious: Yes (Other)
  Sender: FDA-Public Use
  Company Number: PL-BRISTOL-MYERS SQUIBB COMPANY-17176272

PATIENT
  Age: 28 Year
  Sex: Male

DRUGS (1)
  1. ABILIFY [Suspect]
     Dosage: Increased to 15mg/d, then 30 mg and reduced to 15mg

REACTIONS (4)
  - Mania [Unknown]
  - Headache [Unknown]
  - Nausea [Unknown]
  - Insomnia [Unknown]
